FAERS Safety Report 7142300-0 (Version None)
Quarter: 2010Q4

REPORT INFORMATION
  Report Type: 
  Country: None (occurrence: None)
  Receive Date: 20101207
  Receipt Date: 20101201
  Transmission Date: 20110411
  Serious: No
  Sender: FDA-Public Use
  Company Number: US-PFIZER INC-2010162213

PATIENT
  Sex: Female
  Weight: 68.027 kg

DRUGS (4)
  1. LIPITOR [Suspect]
     Indication: BLOOD CHOLESTEROL INCREASED
     Dosage: 40 MG, DAILY
     Route: 048
     Dates: start: 20101001, end: 20101015
  2. ACCUPRIL [Concomitant]
     Indication: HYPERTENSION
     Dosage: UNK
  3. ACTOS [Concomitant]
     Indication: DIABETES MELLITUS
     Dosage: UNK
  4. GLUCOTROL [Concomitant]
     Indication: DIABETES MELLITUS
     Dosage: UNK

REACTIONS (1)
  - MYALGIA [None]
